FAERS Safety Report 17591929 (Version 3)
Quarter: 2021Q4

REPORT INFORMATION
  Report Type: Spontaneous
  Country: US (occurrence: US)
  Receive Date: 20200327
  Receipt Date: 20211014
  Transmission Date: 20220303
  Serious: Yes (Other)
  Sender: FDA-Public Use
  Company Number: ALC2020US002435

PATIENT

DRUGS (2)
  1. CYCLOMYDRIL [Suspect]
     Active Substance: CYCLOPENTOLATE HYDROCHLORIDE\PHENYLEPHRINE HYDROCHLORIDE
     Indication: Retinopathy of prematurity
     Dosage: UNK
     Route: 047
  2. PROPARACAINE HYDROCHLORIDE [Concomitant]
     Active Substance: PROPARACAINE HYDROCHLORIDE
     Indication: Local anaesthesia
     Dosage: UNK
     Route: 047

REACTIONS (5)
  - Apnoea [Unknown]
  - Gastric residual increased [Unknown]
  - Abdominal distension [Unknown]
  - Feeding intolerance [Unknown]
  - Vomiting [Unknown]
